FAERS Safety Report 25604769 (Version 1)
Quarter: 2025Q3

REPORT INFORMATION
  Report Type: Spontaneous
  Country: CN (occurrence: CN)
  Receive Date: 20250725
  Receipt Date: 20250725
  Transmission Date: 20251020
  Serious: Yes (Hospitalization)
  Sender: ABBVIE
  Company Number: CN-ABBVIE-6381944

PATIENT
  Age: 57 Year
  Sex: Female
  Weight: 53 kg

DRUGS (7)
  1. VENCLEXTA [Suspect]
     Active Substance: VENETOCLAX
     Indication: Chemotherapy
     Dosage: 100 MILLIGRAM
     Route: 048
     Dates: start: 20250623, end: 20250623
  2. VENCLEXTA [Suspect]
     Active Substance: VENETOCLAX
     Indication: Chemotherapy
     Dosage: 200 MILLIGRAM
     Route: 048
     Dates: start: 20250624, end: 20250624
  3. VENCLEXTA [Suspect]
     Active Substance: VENETOCLAX
     Indication: Chemotherapy
     Dosage: 400 MILLIGRAM
     Route: 048
     Dates: start: 20250625, end: 20250722
  4. OMACETAXINE MEPESUCCINATE [Suspect]
     Active Substance: OMACETAXINE MEPESUCCINATE
     Indication: Chemotherapy
     Dosage: 2 MILLIGRAM
     Route: 041
     Dates: start: 20250623, end: 20250625
  5. AZACITIDINE [Suspect]
     Active Substance: AZACITIDINE
     Indication: Chemotherapy
     Dosage: 800 MILLIGRAM
     Route: 058
     Dates: start: 20250623, end: 20250629
  6. DEXTROSE [Concomitant]
     Active Substance: DEXTROSE MONOHYDRATE
     Indication: Vehicle solution use
     Dosage: 250 MILLIGRAM
     Route: 041
     Dates: start: 20250623, end: 20250625
  7. SODIUM CHLORIDE [Concomitant]
     Active Substance: SODIUM CHLORIDE
     Indication: Vehicle solution use
     Dosage: 4 ML
     Route: 058
     Dates: start: 20250623, end: 20250629

REACTIONS (2)
  - Myelosuppression [Recovering/Resolving]
  - Pyrexia [Recovered/Resolved]

NARRATIVE: CASE EVENT DATE: 20250627
